FAERS Safety Report 9905220 (Version 1)
Quarter: 2014Q1

REPORT INFORMATION
  Report Type: Spontaneous
  Country: US (occurrence: US)
  Receive Date: 20140218
  Receipt Date: 20140218
  Transmission Date: 20141002
  Serious: Yes (Other)
  Sender: FDA-Public Use
  Company Number: US-SA-2014SA018710

PATIENT
  Age: 66 Year
  Sex: Male

DRUGS (2)
  1. LANTUS SOLOSTAR [Suspect]
     Indication: TYPE 2 DIABETES MELLITUS
     Dosage: DOSE: 0-10 UNITS, FREQUENCY: NIGHTLY
     Route: 058
     Dates: start: 2013
  2. SOLOSTAR [Concomitant]
     Dates: start: 2013

REACTIONS (5)
  - Eye disorder [Recovering/Resolving]
  - Skin ulcer [Not Recovered/Not Resolved]
  - Blood glucose decreased [Not Recovered/Not Resolved]
  - Hyperhidrosis [Not Recovered/Not Resolved]
  - Blood glucose increased [Not Recovered/Not Resolved]
